FAERS Safety Report 15440094 (Version 1)
Quarter: 2018Q3

REPORT INFORMATION
  Report Type: Spontaneous
  Country: CZ (occurrence: CZ)
  Receive Date: 20180928
  Receipt Date: 20180928
  Transmission Date: 20181010
  Serious: Yes (Life-Threatening, Hospitalization, Other)
  Sender: FDA-Public Use
  Company Number: CZ-APOTEX-2018AP021192

PATIENT
  Age: 25 Year
  Sex: Male

DRUGS (4)
  1. ESCITALOPRAM [Suspect]
     Active Substance: ESCITALOPRAM OXALATE
     Dosage: 250 MG, UNK
     Route: 065
  2. ESCITALOPRAM [Suspect]
     Active Substance: ESCITALOPRAM OXALATE
     Indication: DEPRESSION
     Dosage: UNK, UNK
     Route: 065
  3. ADENOSINE. [Concomitant]
     Active Substance: ADENOSINE
     Indication: ELECTROCARDIOGRAM QRS COMPLEX PROLONGED
     Dosage: 12 MG, UNK
     Route: 042
  4. ADENOSINE. [Concomitant]
     Active Substance: ADENOSINE
     Indication: TACHYCARDIA

REACTIONS (13)
  - Ventricular dysfunction [Recovering/Resolving]
  - Ventricular tachycardia [Recovering/Resolving]
  - Electrocardiogram QRS complex prolonged [Recovering/Resolving]
  - Syncope [Recovering/Resolving]
  - Ventricular fibrillation [Recovering/Resolving]
  - Distributive shock [Recovering/Resolving]
  - Serotonin syndrome [Recovering/Resolving]
  - Suicide attempt [Unknown]
  - Brain death [Not Recovered/Not Resolved]
  - Nausea [Recovering/Resolving]
  - Loss of consciousness [Unknown]
  - Toxicity to various agents [Unknown]
  - Ventricular hypokinesia [Recovering/Resolving]
